FAERS Safety Report 11681733 (Version 2)
Quarter: 2015Q4

REPORT INFORMATION
  Report Type: Spontaneous
  Country: ES (occurrence: ES)
  Receive Date: 20151029
  Receipt Date: 20151104
  Transmission Date: 20160304
  Serious: Yes (Other)
  Sender: FDA-Public Use
  Company Number: ES-ASTELLAS-2015US039023

PATIENT
  Age: 63 Year
  Sex: Female

DRUGS (11)
  1. ESCITALOPRAM [Concomitant]
     Active Substance: ESCITALOPRAM OXALATE
     Route: 048
     Dates: start: 20151011
  2. MYFORTIC [Suspect]
     Active Substance: MYCOPHENOLATE SODIUM
     Dosage: UNK, TWICE DAILY
     Route: 048
     Dates: start: 201507
  3. AMERIDE                            /00206601/ [Concomitant]
     Active Substance: AMILORIDE HYDROCHLORIDE\HYDROCHLOROTHIAZIDE
     Indication: PRODUCT USED FOR UNKNOWN INDICATION
     Dosage: 0.5 DF, ONCE DAILY
     Route: 065
  4. ADVAGRAF [Suspect]
     Active Substance: TACROLIMUS
     Indication: LIVER TRANSPLANT
     Route: 048
     Dates: start: 201412, end: 201507
  5. ESCITALOPRAM [Concomitant]
     Active Substance: ESCITALOPRAM OXALATE
     Indication: DEPRESSION
     Route: 048
     Dates: end: 20151011
  6. LEXATIN                            /00424801/ [Concomitant]
     Active Substance: BROMAZEPAM
     Indication: DEPRESSION
     Route: 048
  7. PANTOPRAZOL [Concomitant]
     Active Substance: PANTOPRAZOLE SODIUM
     Indication: PROPHYLAXIS
     Route: 048
  8. ADVAGRAF [Suspect]
     Active Substance: TACROLIMUS
     Route: 048
     Dates: start: 201507
  9. MYFORTIC [Suspect]
     Active Substance: MYCOPHENOLATE SODIUM
     Indication: LIVER TRANSPLANT
     Dosage: UNK UNK, 4 TIMES DAILY
     Route: 048
     Dates: start: 201412, end: 201507
  10. ENALAPRIL [Concomitant]
     Active Substance: ENALAPRIL
     Indication: HYPERTENSION
     Route: 048
     Dates: start: 201505
  11. NOCTAMID [Concomitant]
     Active Substance: LORMETAZEPAM
     Indication: INSOMNIA
     Route: 048

REACTIONS (5)
  - Paracentesis [Not Recovered/Not Resolved]
  - Alopecia [Not Recovered/Not Resolved]
  - Nervousness [Not Recovered/Not Resolved]
  - Colitis [Not Recovered/Not Resolved]
  - Mucosal inflammation [Not Recovered/Not Resolved]

NARRATIVE: CASE EVENT DATE: 201412
